FAERS Safety Report 21226891 (Version 1)
Quarter: 2022Q3

REPORT INFORMATION
  Report Type: Other
  Country: UA (occurrence: UA)
  Receive Date: 20220818
  Receipt Date: 20220818
  Transmission Date: 20221026
  Serious: Yes (Life-Threatening, Other)
  Sender: FDA-Public Use
  Company Number: UA-GLENMARK PHARMACEUTICALS-2022GMK074361

PATIENT

DRUGS (7)
  1. LINEZOLID [Suspect]
     Active Substance: LINEZOLID
     Indication: Pulmonary tuberculosis
     Dosage: 1 DOSAGE FORM, QD (24 HOURS)
     Route: 048
     Dates: start: 20170816, end: 20171114
  2. CAPREOMYCIN SULFATE [Concomitant]
     Active Substance: CAPREOMYCIN SULFATE
     Indication: Pulmonary tuberculosis
     Dosage: 750 MILLIGRAM, QD
     Route: 030
     Dates: start: 20170816, end: 20171114
  3. MOXIFLOXACIN [Concomitant]
     Active Substance: MOXIFLOXACIN
     Indication: Pulmonary tuberculosis
     Dosage: 400 MILLIGRAM, QD
     Route: 048
     Dates: start: 20170830, end: 20171114
  4. PASK SODIUM SALT [Concomitant]
     Indication: Pulmonary tuberculosis
     Dosage: 8000 MILLIGRAM, QD
     Route: 048
     Dates: start: 20170830, end: 20171114
  5. PYRAZINAMIDE [Concomitant]
     Active Substance: PYRAZINAMIDE
     Indication: Pulmonary tuberculosis
     Dosage: 1500 MILLIGRAM, QD
     Route: 048
     Dates: start: 20170407, end: 20171114
  6. PROTIONAMIDE [Concomitant]
     Active Substance: PROTIONAMIDE
     Indication: Pulmonary tuberculosis
     Dosage: 750 MILLIGRAM, QD
     Route: 048
     Dates: start: 20170816, end: 20171114
  7. CYCLOSERINE [Concomitant]
     Active Substance: CYCLOSERINE
     Indication: Pulmonary tuberculosis
     Dosage: 750 MILLIGRAM, QD
     Route: 048
     Dates: start: 20170816, end: 20171114

REACTIONS (10)
  - Decreased appetite [Not Recovered/Not Resolved]
  - Blood bilirubin increased [Not Recovered/Not Resolved]
  - Blood urea increased [Not Recovered/Not Resolved]
  - Blood creatinine increased [Not Recovered/Not Resolved]
  - Nausea [Not Recovered/Not Resolved]
  - Anaemia [Not Recovered/Not Resolved]
  - Alanine aminotransferase increased [Not Recovered/Not Resolved]
  - Aspartate aminotransferase increased [Not Recovered/Not Resolved]
  - Thrombocytopenia [Not Recovered/Not Resolved]
  - Product use in unapproved indication [Unknown]

NARRATIVE: CASE EVENT DATE: 20170816
